FAERS Safety Report 6383618-9 (Version None)
Quarter: 2009Q4

REPORT INFORMATION
  Report Type: 
  Country: None (occurrence: None)
  Receive Date: 20091001
  Receipt Date: 20090922
  Transmission Date: 20100525
  Serious: Yes (Other)
  Sender: FDA-Public Use
  Company Number: US-ASTRAZENECA-2009SE14890

PATIENT
  Sex: Female

DRUGS (5)
  1. ARIMIDEX [Suspect]
     Indication: BREAST CANCER
     Route: 048
     Dates: start: 20070801
  2. NAPROSYN [Concomitant]
  3. TYLENOL [Concomitant]
  4. AMBIEN [Concomitant]
  5. CALCIUM W/D [Concomitant]

REACTIONS (7)
  - ARTHRALGIA [None]
  - BONE DENSITY DECREASED [None]
  - FALL [None]
  - IMPAIRED HEALING [None]
  - MASTECTOMY [None]
  - PARAESTHESIA [None]
  - TRIGGER FINGER [None]
